FAERS Safety Report 9991989 (Version 2)
Quarter: 2014Q3

REPORT INFORMATION
  Report Type: Spontaneous
  Country: US (occurrence: US)
  Receive Date: 20140310
  Receipt Date: 20140805
  Transmission Date: 20150326
  Serious: Yes (Other)
  Sender: FDA-Public Use
  Company Number: US-ASTELLAS-2014US001399

PATIENT
  Age: 81 Year
  Sex: Male

DRUGS (2)
  1. XTANDI [Suspect]
     Active Substance: ENZALUTAMIDE
     Indication: PROSTATE CANCER
     Route: 048
     Dates: start: 20140115
  2. XTANDI [Suspect]
     Active Substance: ENZALUTAMIDE
     Route: 048
     Dates: end: 20140714

REACTIONS (10)
  - Weight decreased [Unknown]
  - Fatigue [Unknown]
  - Skin haemorrhage [Unknown]
  - Lethargy [Unknown]
  - Gait disturbance [Unknown]
  - Prostatic specific antigen increased [Unknown]
  - Blood urine present [Unknown]
  - Pain in extremity [Unknown]
  - Tinea pedis [Unknown]
  - Asthenia [Unknown]

NARRATIVE: CASE EVENT DATE: 20140412
